FAERS Safety Report 4611638-0 (Version None)
Quarter: 2005Q1

REPORT INFORMATION
  Report Type: 
  Country: None (occurrence: None)
  Receive Date: 20050316
  Receipt Date: 20050316
  Transmission Date: 20050727
  Serious: Yes (Hospitalization)
  Sender: FDA-Public Use
  Company Number: None

PATIENT
  Age: 50 Year
  Sex: Male
  Weight: 177.81 kg

DRUGS (4)
  1. TEQUIN [Suspect]
     Indication: CELLULITIS
     Dosage: 400 MG PO DAILY
     Route: 048
     Dates: start: 20050305, end: 20050311
  2. FUROSEMIDE [Concomitant]
  3. ZOCOR [Concomitant]
  4. CARVEDILOL [Concomitant]

REACTIONS (3)
  - FATIGUE [None]
  - HYPERGLYCAEMIA [None]
  - THIRST [None]
